FAERS Safety Report 4916925-4 (Version None)
Quarter: 2006Q1

REPORT INFORMATION
  Report Type: 
  Country: None (occurrence: None)
  Receive Date: 20060221
  Receipt Date: 20060209
  Transmission Date: 20060701
  Serious: Yes (Other)
  Sender: FDA-Public Use
  Company Number: ES-JNJFOC-20060202616

PATIENT
  Age: 17 Year
  Sex: Female

DRUGS (7)
  1. REMICADE [Suspect]
     Dosage: SECOND INFUSION.
     Route: 042
  2. REMICADE [Suspect]
     Indication: DRUG USE FOR UNKNOWN INDICATION
     Dosage: FIRST INFUSION.
     Route: 042
  3. POLARAMINE [Concomitant]
  4. POLARAMINE [Concomitant]
  5. URBASON [Concomitant]
  6. URBASON [Concomitant]
  7. CORTICOIDS [Concomitant]

REACTIONS (5)
  - DYSPNOEA [None]
  - HEADACHE [None]
  - INFUSION RELATED REACTION [None]
  - URTICARIA [None]
  - VOMITING [None]
